FAERS Safety Report 6487242-9 (Version None)
Quarter: 2009Q4

REPORT INFORMATION
  Report Type: 
  Country: None (occurrence: None)
  Receive Date: 20091210
  Receipt Date: 20090904
  Transmission Date: 20100525
  Serious: No
  Sender: FDA-Public Use
  Company Number: US-AMGEN-KDL359639

PATIENT
  Sex: Female
  Weight: 91.3 kg

DRUGS (15)
  1. ENBREL [Suspect]
     Indication: RHEUMATOID ARTHRITIS
     Route: 058
     Dates: start: 20090510
  2. METHOTREXATE [Concomitant]
     Route: 048
     Dates: start: 20060401
  3. BONIVA [Concomitant]
  4. FOLIC ACID [Concomitant]
  5. BENADRYL [Concomitant]
  6. SYNTHROID [Concomitant]
  7. PRILOSEC [Concomitant]
  8. AMBIEN [Concomitant]
  9. ASPIRIN [Concomitant]
  10. CALCIUM [Concomitant]
  11. MAGNESIUM [Concomitant]
  12. MULTI-VITAMINS [Concomitant]
  13. ASCORBIC ACID [Concomitant]
  14. FISH OIL [Concomitant]
  15. LIPITOR [Concomitant]

REACTIONS (7)
  - BODY TEMPERATURE FLUCTUATION [None]
  - HEADACHE [None]
  - MUSCULOSKELETAL PAIN [None]
  - PAIN [None]
  - RHEUMATOID NODULE [None]
  - VERTIGO POSITIONAL [None]
  - VIRAL INFECTION [None]
